FAERS Safety Report 18335293 (Version 2)
Quarter: 2020Q4

REPORT INFORMATION
  Report Type: Spontaneous
  Country: TR (occurrence: TR)
  Receive Date: 20201001
  Receipt Date: 20201012
  Transmission Date: 20210113
  Serious: Yes (Other)
  Sender: FDA-Public Use
  Company Number: TR-TAKEDA-2020TUS040567

PATIENT
  Age: 62 Year
  Sex: Male

DRUGS (4)
  1. DONEPEZIL. [Suspect]
     Active Substance: DONEPEZIL
     Indication: MEMORY IMPAIRMENT
  2. FONKSERA [Suspect]
     Active Substance: VORTIOXETINE
     Indication: MEMORY IMPAIRMENT
  3. DONEPEZIL. [Suspect]
     Active Substance: DONEPEZIL
     Indication: DEPRESSION
     Dosage: 10 MILLIGRAM
     Route: 065
  4. FONKSERA [Suspect]
     Active Substance: VORTIOXETINE
     Indication: DEPRESSION
     Dosage: 10 MILLIGRAM
     Route: 048

REACTIONS (1)
  - Tardive dyskinesia [Recovering/Resolving]
